FAERS Safety Report 8382214-1 (Version None)
Quarter: 2012Q2

REPORT INFORMATION
  Report Type: 
  Country: None (occurrence: None)
  Receive Date: 20120524
  Receipt Date: 20120521
  Transmission Date: 20120825
  Serious: No
  Sender: FDA-Public Use
  Company Number: US-PFIZER INC-2012122472

PATIENT
  Age: 79 Year
  Sex: Male
  Weight: 95 kg

DRUGS (4)
  1. GABAPENTIN [Interacting]
     Dosage: 300 MG, 2X/DAY
     Dates: start: 20120411, end: 20120508
  2. NEURONTIN [Suspect]
     Dosage: UNK
     Dates: start: 20110601
  3. POTASSIUM PENICILLIN G [Interacting]
     Indication: EAR INFECTION
     Dosage: ONE TABLET THREE TIMES A DAY
     Dates: start: 20120216, end: 20120101
  4. PROBIOTICS [Concomitant]
     Indication: SUPPLEMENTATION THERAPY
     Dosage: AS NEEDED
     Dates: start: 20110101

REACTIONS (5)
  - RENAL DISORDER [None]
  - BACK DISORDER [None]
  - DRY MOUTH [None]
  - DYSPEPSIA [None]
  - DRUG INTERACTION [None]
